FAERS Safety Report 5826154-8 (Version None)
Quarter: 2008Q3

REPORT INFORMATION
  Report Type: 
  Country: None (occurrence: None)
  Receive Date: 20080729
  Receipt Date: 20080724
  Transmission Date: 20090109
  Serious: Yes (Life-Threatening, Hospitalization)
  Sender: FDA-Public Use
  Company Number: FR-WYE-G01911408

PATIENT
  Sex: Female

DRUGS (2)
  1. ADVIL [Suspect]
     Indication: TONSILLITIS
     Dosage: UNKNOWN
     Route: 048
  2. AMOXICILLIN [Suspect]
     Indication: TONSILLITIS
     Dosage: UNKNOWN
     Route: 048

REACTIONS (6)
  - DISSEMINATED INTRAVASCULAR COAGULATION [None]
  - DRUG RASH WITH EOSINOPHILIA AND SYSTEMIC SYMPTOMS [None]
  - HEPATITIS ACUTE [None]
  - HEPATOCELLULAR INJURY [None]
  - PANCYTOPENIA [None]
  - VOMITING [None]
